FAERS Safety Report 11719465 (Version 2)
Quarter: 2015Q4

REPORT INFORMATION
  Report Type: Report from Study
  Country: US (occurrence: US)
  Receive Date: 20151110
  Receipt Date: 20151120
  Transmission Date: 20160304
  Serious: No
  Sender: FDA-Public Use
  Company Number: US-AMGEN-USASL2015116377

PATIENT
  Age: 56 Year
  Sex: Male

DRUGS (1)
  1. ENBREL [Suspect]
     Active Substance: ETANERCEPT
     Indication: RHEUMATOID ARTHRITIS
     Dosage: 50 MG, QWK
     Route: 065
     Dates: start: 201503

REACTIONS (7)
  - Gout [Unknown]
  - Arthralgia [Unknown]
  - Pain in extremity [Unknown]
  - Grip strength decreased [Unknown]
  - Neuropathy peripheral [Unknown]
  - Incorrect product storage [Unknown]
  - Back pain [Unknown]

NARRATIVE: CASE EVENT DATE: 2015
